FAERS Safety Report 9613780 (Version 2)
Quarter: 2013Q4

REPORT INFORMATION
  Report Type: Spontaneous
  Country: US (occurrence: US)
  Receive Date: 20131010
  Receipt Date: 20131016
  Transmission Date: 20140711
  Serious: Yes (Death, Hospitalization)
  Sender: FDA-Public Use
  Company Number: US-009507513-1310USA001901

PATIENT
  Age: 74 Year
  Sex: Male

DRUGS (2)
  1. TEMODAR [Suspect]
     Indication: COLON CANCER
     Dosage: 3-100 MG CAPSULES DAILY
     Route: 048
     Dates: start: 20130817
  2. TEMODAR [Suspect]
     Indication: RECTAL CANCER

REACTIONS (2)
  - Death [Fatal]
  - Adverse event [Unknown]
